FAERS Safety Report 7728572-X (Version None)
Quarter: 2011Q3

REPORT INFORMATION
  Report Type: 
  Country: None (occurrence: None)
  Receive Date: 20110831
  Receipt Date: 20110831
  Transmission Date: 20111222
  Serious: Yes (Other)
  Sender: FDA-Public Use
  Company Number: None

PATIENT
  Sex: Female
  Weight: 53.0709 kg

DRUGS (1)
  1. CALCITONIN SALMON [Suspect]
     Indication: OSTEOPENIA
     Dosage: ONE SPRAY PER NIGHT NASAL
     Route: 045
     Dates: start: 20110805

REACTIONS (6)
  - EAR PAIN [None]
  - OROPHARYNGEAL PAIN [None]
  - DYSPNOEA [None]
  - BURNING SENSATION [None]
  - CHEST DISCOMFORT [None]
  - PRODUCT SUBSTITUTION ISSUE [None]
